FAERS Safety Report 17956258 (Version 1)
Quarter: 2020Q2

REPORT INFORMATION
  Report Type: Spontaneous
  Country: GB (occurrence: GB)
  Receive Date: 20200629
  Receipt Date: 20200629
  Transmission Date: 20200714
  Serious: Yes (Other)
  Sender: FDA-Public Use
  Company Number: GB-TEVA-2020-GB-1791898

PATIENT
  Age: 73 Year
  Sex: Female
  Weight: 90 kg

DRUGS (11)
  1. SALBUTAMOL [Concomitant]
     Active Substance: ALBUTEROL
     Dosage: INHALE 1-2 PUFFS  UPTO FOUR TIMES A DAY...
     Route: 055
     Dates: start: 20180731
  2. RANITIDINE. [Concomitant]
     Active Substance: RANITIDINE
     Dosage: 2 DOSAGE FORMS
     Dates: start: 20180731, end: 20200415
  3. PARACETAMOL [Concomitant]
     Active Substance: ACETAMINOPHEN
     Dosage: TAKE 1 OR 2, EVERY 4 HOURS, UP TO 4 TIMES A DAY...
     Dates: start: 20180731
  4. DOXYCYCLINE. [Concomitant]
     Active Substance: DOXYCYCLINE
     Dosage: 1 DOSAGE FORMS
     Dates: start: 20180731
  5. MONTELUKAST [Concomitant]
     Active Substance: MONTELUKAST SODIUM
     Dosage: 1 DOSAGE FORMS DAILY; TAKE AT NIGHT
     Dates: start: 20180731
  6. VISCOTEARS [Concomitant]
     Active Substance: CARBOMER
     Dosage: 1 GTT
     Dates: start: 20180731
  7. OMEPRAZOLE. [Suspect]
     Active Substance: OMEPRAZOLE
     Dosage: 20 MG
     Route: 065
     Dates: start: 20200415
  8. HYLO-FORTE [Concomitant]
     Active Substance: HYALURONATE SODIUM
     Dosage: USE AS DIRECTED
     Dates: start: 20180731
  9. FOSTAIR [Concomitant]
     Active Substance: BECLOMETHASONE\FORMOTEROL
     Dosage: PUFFS 4 DOSAGE FORMS
     Dates: start: 20180731
  10. AMITRIPTYLINE HYDROCHLORIDE. [Concomitant]
     Active Substance: AMITRIPTYLINE HYDROCHLORIDE
     Dosage: 1 DOSAGE FORMS DAILY; TAKE AT NIGHT
     Dates: start: 20180731
  11. CEFALEXIN [Concomitant]
     Active Substance: CEPHALEXIN
     Dosage: 4 DOSAGE FORMS DAILY; TAKE ONE 4 TIMES/DAY FOR 14 DAYS AS S...
     Dates: start: 20191127

REACTIONS (4)
  - Bronchospasm [Recovered/Resolved]
  - Dysgeusia [Unknown]
  - Wheezing [Unknown]
  - Mouth swelling [Unknown]

NARRATIVE: CASE EVENT DATE: 20200604
